FAERS Safety Report 8052316-8 (Version None)
Quarter: 2012Q1

REPORT INFORMATION
  Report Type: 
  Country: None (occurrence: None)
  Receive Date: 20120118
  Receipt Date: 20120110
  Transmission Date: 20120608
  Serious: Yes (Death)
  Sender: FDA-Public Use
  Company Number: GB-JNJFOC-20120103114

PATIENT
  Sex: Male
  Weight: 67 kg

DRUGS (3)
  1. OTHER BIOLOGICS [Concomitant]
     Indication: RHEUMATOID ARTHRITIS
  2. INFLIXIMAB, RECOMBINANT [Suspect]
     Indication: RHEUMATOID ARTHRITIS
     Route: 042
     Dates: start: 20020920, end: 20040127
  3. METHOTREXATE [Concomitant]

REACTIONS (1)
  - LUNG CANCER METASTATIC [None]
